FAERS Safety Report 8134872 (Version 64)
Quarter: 2023Q2

REPORT INFORMATION
  Report Type: Spontaneous
  Country: GB (occurrence: GB)
  Receive Date: 20110914
  Receipt Date: 20230628
  Transmission Date: 20230721
  Serious: Yes (Life-Threatening, Hospitalization, Disabling, Other)
  Sender: FDA-Public Use
  Company Number: GB-RANBAXY-2011R1-47430

PATIENT
  Age: 31 Year
  Sex: Female
  Weight: 63.5 kg

DRUGS (38)
  1. CLONAZEPAM [Interacting]
     Active Substance: CLONAZEPAM
     Indication: Sedation
     Dosage: UNSURE
     Route: 048
     Dates: start: 20110224, end: 20110410
  2. CODEINE [Suspect]
     Active Substance: CODEINE
     Indication: Analgesic therapy
     Dosage: UNK
     Route: 048
     Dates: start: 20110615, end: 20110723
  3. CODEINE [Suspect]
     Active Substance: CODEINE
     Dosage: UNK
     Route: 048
     Dates: start: 20110224, end: 20110410
  4. LORAZEPAM [Suspect]
     Active Substance: LORAZEPAM
     Indication: Sedation
     Dosage: 1 MG, QID
     Route: 048
     Dates: start: 20110523, end: 20110627
  5. LORAZEPAM [Suspect]
     Active Substance: LORAZEPAM
     Dosage: 1 MILLIGRAM
     Route: 048
     Dates: start: 20110224, end: 20110410
  6. LORAZEPAM [Suspect]
     Active Substance: LORAZEPAM
     Dosage: 1 MILLIGRAM
     Route: 048
     Dates: start: 20110725
  7. LORAZEPAM [Suspect]
     Active Substance: LORAZEPAM
     Indication: Sedation
     Dosage: UNK
     Route: 048
     Dates: start: 20110224, end: 20110410
  8. MIRTAZAPINE [Suspect]
     Active Substance: MIRTAZAPINE
     Indication: Depression
     Dosage: UNSURE
     Route: 048
     Dates: start: 20100923, end: 20101108
  9. MIRTAZAPINE [Suspect]
     Active Substance: MIRTAZAPINE
     Indication: Depression
     Dosage: UNK
     Route: 065
     Dates: start: 20110224, end: 20110506
  10. MIRTAZAPINE [Suspect]
     Active Substance: MIRTAZAPINE
     Indication: Psychotic disorder
  11. DIAZEPAM [Suspect]
     Active Substance: DIAZEPAM
     Indication: Muscle spasms
     Dosage: 8 MG, QD
     Route: 065
  12. DIAZEPAM [Suspect]
     Active Substance: DIAZEPAM
     Indication: Depression
  13. PAROXETINE [Suspect]
     Active Substance: PAROXETINE
     Indication: Post-traumatic stress disorder
     Dosage: UNK
     Route: 048
     Dates: start: 19990801, end: 20110706
  14. PAROXETINE [Suspect]
     Active Substance: PAROXETINE
     Indication: Depression
     Dosage: UNK
     Route: 048
     Dates: start: 1996
  15. CODEINE [Suspect]
     Active Substance: CODEINE
     Indication: Analgesic therapy
     Dosage: UNK
     Route: 048
     Dates: start: 2002, end: 2002
  16. CODEINE [Suspect]
     Active Substance: CODEINE
     Indication: Analgesic therapy
     Dosage: UNSURE
     Route: 048
     Dates: start: 20110615, end: 20110723
  17. CODEINE [Suspect]
     Active Substance: CODEINE
     Dosage: UNK
     Route: 048
     Dates: start: 2008, end: 2008
  18. AMITRIPTYLINE [Suspect]
     Active Substance: AMITRIPTYLINE
     Indication: Muscle spasms
     Dosage: 25MG AT NIGHT
     Route: 065
     Dates: start: 20110810
  19. AMITRIPTYLINE [Suspect]
     Active Substance: AMITRIPTYLINE
     Indication: Neuralgia
  20. AMITRIPTYLINE [Suspect]
     Active Substance: AMITRIPTYLINE
     Indication: Muscle spasms
  21. AMITRIPTYLINE [Suspect]
     Active Substance: AMITRIPTYLINE
     Indication: Neuralgia
  22. QUETIAPINE [Suspect]
     Active Substance: QUETIAPINE
     Indication: Stress
     Dosage: UNK
     Route: 048
     Dates: start: 20110224, end: 20110506
  23. QUETIAPINE [Suspect]
     Active Substance: QUETIAPINE
     Dosage: UNK
     Route: 048
     Dates: start: 19990801, end: 20110706
  24. DIAZEPAM [Suspect]
     Active Substance: DIAZEPAM
     Indication: Muscle spasms
     Dosage: 5 MG, QID
     Route: 065
     Dates: start: 20110725
  25. DIAZEPAM [Suspect]
     Active Substance: DIAZEPAM
     Dosage: DOSAGE FORM: UNSPECIFIED
     Route: 065
  26. DIAZEPAM [Suspect]
     Active Substance: DIAZEPAM
     Route: 065
  27. KEMADRIN [Suspect]
     Active Substance: PROCYCLIDINE HYDROCHLORIDE
     Indication: Extrapyramidal disorder
     Dosage: UNK
     Route: 065
     Dates: start: 1995, end: 1996
  28. KEMADRIN [Suspect]
     Active Substance: PROCYCLIDINE HYDROCHLORIDE
     Indication: Extrapyramidal disorder
     Dosage: DOSAGE FORM: UNSPECIFIED
     Route: 048
     Dates: start: 1995, end: 1996
  29. KEMADRIN [Suspect]
     Active Substance: PROCYCLIDINE HYDROCHLORIDE
     Indication: Oculogyric crisis
     Dosage: 5 MILLIGRAM
     Route: 048
     Dates: start: 20110503, end: 20110510
  30. KEMADRIN [Suspect]
     Active Substance: PROCYCLIDINE HYDROCHLORIDE
     Indication: Oculogyric crisis
     Dosage: 05 MG, TID
     Route: 048
     Dates: start: 20110503, end: 20110510
  31. KEMADRIN [Suspect]
     Active Substance: PROCYCLIDINE HYDROCHLORIDE
     Indication: Extrapyramidal disorder
  32. PAROXETINE HYDROCHLORIDE [Suspect]
     Active Substance: PAROXETINE HYDROCHLORIDE
     Indication: Depression
     Dosage: 20MG THREE TIMES PER DAY
     Route: 048
     Dates: start: 19990801, end: 201105
  33. PAROXETINE HYDROCHLORIDE [Suspect]
     Active Substance: PAROXETINE HYDROCHLORIDE
     Indication: Product used for unknown indication
     Dosage: DOSAGE FORM: UNSPECIFIED
     Route: 048
     Dates: start: 201105, end: 20110706
  34. PAROXETINE HYDROCHLORIDE [Suspect]
     Active Substance: PAROXETINE HYDROCHLORIDE
     Indication: Depression
     Dosage: 20 MG, BID
     Route: 048
     Dates: start: 2011, end: 20110706
  35. DOMPERIDONE [Suspect]
     Active Substance: DOMPERIDONE
     Indication: Product used for unknown indication
     Dosage: UNK
     Route: 065
  36. DOMPERIDONE [Suspect]
     Active Substance: DOMPERIDONE
     Indication: Product used for unknown indication
     Dosage: UNK
     Route: 065
     Dates: start: 20100923, end: 20101108
  37. TRAMADOL HYDROCHLORIDE [Suspect]
     Active Substance: TRAMADOL HYDROCHLORIDE
     Indication: Pain
     Dosage: UNSPECIFIED, 50-100, 4 CYCLICAL
     Route: 048
     Dates: start: 20080722
  38. OMEPRAZOLE [Suspect]
     Active Substance: OMEPRAZOLE
     Indication: Parosmia
     Dosage: 20 MILLIGRAM, DAILY
     Route: 065
     Dates: start: 20110525

REACTIONS (100)
  - Aphasia [Not Recovered/Not Resolved]
  - Arthralgia [Unknown]
  - Agitation [Unknown]
  - Anxiety [Unknown]
  - Asthenia [Unknown]
  - Blood sodium decreased [Unknown]
  - Cogwheel rigidity [Unknown]
  - Contusion [Unknown]
  - Cyanosis [Unknown]
  - Depression [Unknown]
  - Confusional state [Not Recovered/Not Resolved]
  - Drug withdrawal syndrome [Unknown]
  - Drug withdrawal syndrome [Unknown]
  - Delirium [Unknown]
  - Dissociation [Not Recovered/Not Resolved]
  - Dyspnoea [Unknown]
  - Disorientation [Not Recovered/Not Resolved]
  - Disturbance in attention [Unknown]
  - Dyskinesia [Unknown]
  - Dizziness [Unknown]
  - Diarrhoea [Unknown]
  - Dizziness [Unknown]
  - Depersonalisation/derealisation disorder [Not Recovered/Not Resolved]
  - Decreased appetite [Unknown]
  - Derealisation [Not Recovered/Not Resolved]
  - Drooling [Unknown]
  - Emotional disorder [Unknown]
  - Feeling of body temperature change [Unknown]
  - Gait disturbance [Unknown]
  - Hallucinations, mixed [Unknown]
  - Hypoaesthesia oral [Not Recovered/Not Resolved]
  - Hypoaesthesia [Not Recovered/Not Resolved]
  - H1N1 influenza [Unknown]
  - Incontinence [Not Recovered/Not Resolved]
  - Mania [Unknown]
  - Musculoskeletal stiffness [Not Recovered/Not Resolved]
  - Muscle rigidity [Unknown]
  - Mood swings [Unknown]
  - Muscle disorder [Unknown]
  - Muscle spasms [Not Recovered/Not Resolved]
  - Neuroleptic malignant syndrome [Unknown]
  - Pallor [Unknown]
  - Paraesthesia [Unknown]
  - Psychotic disorder [Recovered/Resolved]
  - Paralysis [Unknown]
  - Swelling face [Unknown]
  - Suicidal ideation [Not Recovered/Not Resolved]
  - Serotonin syndrome [Not Recovered/Not Resolved]
  - Schizophrenia [Unknown]
  - Seizure [Unknown]
  - Sensory loss [Unknown]
  - Skin discolouration [Not Recovered/Not Resolved]
  - Swollen tongue [Unknown]
  - Tinnitus [Unknown]
  - Tremor [Not Recovered/Not Resolved]
  - Toxicity to various agents [Unknown]
  - Tachycardia [Unknown]
  - Urinary retention [Unknown]
  - Visual impairment [Unknown]
  - Vision blurred [Unknown]
  - Feeling of despair [Unknown]
  - Pyrexia [Unknown]
  - Gastric pH decreased [Unknown]
  - Headache [Unknown]
  - Heart rate increased [Unknown]
  - Feeling jittery [Unknown]
  - Menstrual disorder [Unknown]
  - Nightmare [Unknown]
  - Eye pain [Unknown]
  - Pruritus [Unknown]
  - Mydriasis [Unknown]
  - Restlessness [Unknown]
  - Illness [Unknown]
  - Sleep disorder [Unknown]
  - Parosmia [Unknown]
  - Hyperhidrosis [Unknown]
  - Vomiting [Unknown]
  - Contusion [Unknown]
  - Restless legs syndrome [Not Recovered/Not Resolved]
  - Serotonin syndrome [Not Recovered/Not Resolved]
  - Muscle rigidity [Unknown]
  - Musculoskeletal stiffness [Not Recovered/Not Resolved]
  - Sleep disorder [Unknown]
  - Cyanosis [Not Recovered/Not Resolved]
  - Hypoaesthesia oral [Unknown]
  - Hyperhidrosis [Unknown]
  - Premature labour [Not Recovered/Not Resolved]
  - Eye pain [Unknown]
  - Drug interaction [Unknown]
  - Muscle spasms [Unknown]
  - Feeling of body temperature change [Unknown]
  - Speech disorder [Unknown]
  - Visual impairment [Unknown]
  - Swollen tongue [Unknown]
  - Paraesthesia [Unknown]
  - Exposure during pregnancy [Unknown]
  - Fatigue [Unknown]
  - Diarrhoea [Unknown]
  - Dystonia [Unknown]
  - Paralysis [Unknown]

NARRATIVE: CASE EVENT DATE: 20030101
